FAERS Safety Report 6242639-7 (Version None)
Quarter: 2009Q2

REPORT INFORMATION
  Report Type: 
  Country: None (occurrence: None)
  Receive Date: 20090624
  Receipt Date: 20090616
  Transmission Date: 20091009
  Serious: Yes (Hospitalization, Other)
  Sender: FDA-Public Use
  Company Number: US-ASTRAZENECA-2009UW15347

PATIENT
  Age: 19565 Day
  Sex: Female

DRUGS (3)
  1. SEROQUEL [Suspect]
     Route: 048
     Dates: start: 20080821
  2. SEROQUEL [Suspect]
     Dosage: SEROQUEL XR
     Route: 048
     Dates: start: 20090416
  3. ZOMIG [Concomitant]
     Indication: MIGRAINE
     Route: 048
     Dates: start: 20090101

REACTIONS (3)
  - HYPOAESTHESIA [None]
  - MENTAL DISORDER [None]
  - SURGERY [None]
